FAERS Safety Report 21530291 (Version 2)
Quarter: 2023Q1

REPORT INFORMATION
  Report Type: Report from Study
  Country: CN (occurrence: CN)
  Receive Date: 20221031
  Receipt Date: 20230106
  Transmission Date: 20230418
  Serious: Yes (Death)
  Sender: FDA-Public Use
  Company Number: CN-GILEAD-2022-0602985

PATIENT
  Age: 57 Year
  Sex: Male
  Weight: 63 kg

DRUGS (6)
  1. SACITUZUMAB GOVITECAN [Suspect]
     Active Substance: SACITUZUMAB GOVITECAN
     Indication: Transitional cell carcinoma
     Dosage: 10 MG/KG, D1  D8 Q3WK
     Route: 042
     Dates: start: 20220415, end: 20220811
  2. ASPIRIN [Concomitant]
     Active Substance: ASPIRIN
     Dosage: UNK
     Dates: start: 201801
  3. TRELAGLIPTIN SUCCINATE [Concomitant]
     Active Substance: TRELAGLIPTIN SUCCINATE
     Indication: Diabetes mellitus
     Dosage: UNK
     Dates: start: 201908
  4. METOPROLOL SUCCINATE [Concomitant]
     Active Substance: METOPROLOL SUCCINATE
     Indication: Heart rate
     Dosage: UNK
     Dates: start: 201801
  5. DICYCLO [Concomitant]
     Indication: Transaminases increased
     Dosage: UNK
     Dates: start: 20220627
  6. CAMPHOR [Concomitant]
     Active Substance: CAMPHOR
     Indication: Rash
     Dosage: UNK
     Dates: start: 20220708

REACTIONS (1)
  - Hepatic failure [Fatal]

NARRATIVE: CASE EVENT DATE: 20220830
